FAERS Safety Report 15191034 (Version 3)
Quarter: 2018Q4

REPORT INFORMATION
  Report Type: Report from Study
  Country: DE (occurrence: DE)
  Receive Date: 20180724
  Receipt Date: 20181126
  Transmission Date: 20190204
  Serious: Yes (Hospitalization)
  Sender: FDA-Public Use
  Company Number: DE-PFIZER INC-2018292363

PATIENT
  Age: 59 Year
  Sex: Female
  Weight: 72.5 kg

DRUGS (7)
  1. HUMULIN NOS [Concomitant]
     Active Substance: INSULIN HUMAN
     Indication: BLOOD GLUCOSE INCREASED
     Dosage: 100 IU, AS NEEDED
     Route: 058
     Dates: start: 20160428
  2. VITAMIN B12 [Concomitant]
     Active Substance: CYANOCOBALAMIN
     Indication: VITAMIN B12 DEFICIENCY
     Dosage: 1000 UG, EVERY 3 MONTHS
     Route: 042
     Dates: start: 20160630
  3. BEVACIZUMAB. [Suspect]
     Active Substance: BEVACIZUMAB
     Indication: BREAST CANCER
     Dosage: 720 MG, CYCLIC (EVERY 2 WEEKS) (SUBSEQUENT DOSE RECEIVED ON 30JUN2016)
     Route: 042
     Dates: start: 20160519
  4. XELODA [Concomitant]
     Active Substance: CAPECITABINE
     Indication: BREAST CANCER
     Dosage: 3000 MG, EVERY 3 WEEKS
     Route: 048
     Dates: start: 20160728, end: 20170810
  5. PREGABALIN. [Concomitant]
     Active Substance: PREGABALIN
     Indication: NEURALGIA
     Dosage: 150 MG, 1X/DAY
     Route: 048
     Dates: start: 20160411
  6. CAPECITABINE. [Suspect]
     Active Substance: CAPECITABINE
     Indication: BREAST CANCER
     Dosage: 3000 MG, EVERY 3 WEEKS
     Route: 048
     Dates: start: 20160728, end: 20170810
  7. PACLITAXEL. [Suspect]
     Active Substance: PACLITAXEL
     Indication: BREAST CANCER
     Dosage: 150 MG, WEEKLY (SUBSEQUENT DOSE RECEIVED ON 30JUN2016)
     Route: 042
     Dates: start: 20160421

REACTIONS (2)
  - Erysipelas [Recovered/Resolved]
  - Vitamin B12 deficiency [Unknown]

NARRATIVE: CASE EVENT DATE: 20160630
